FAERS Safety Report 15151954 (Version 1)
Quarter: 2018Q3

REPORT INFORMATION
  Report Type: Spontaneous
  Country: US (occurrence: US)
  Receive Date: 20180717
  Receipt Date: 20180717
  Transmission Date: 20181010
  Serious: No
  Sender: FDA-Public Use
  Company Number: US-AMGEN-USASP2018095413

PATIENT
  Age: 58 Year
  Sex: Male

DRUGS (8)
  1. CEPHALEXIN. [Concomitant]
     Active Substance: CEPHALEXIN
     Dosage: 500 MG, UNK
  2. PERCOCET [Concomitant]
     Active Substance: ACETAMINOPHEN\OXYCODONE HYDROCHLORIDE
     Dosage: 10? 325 MG
  3. FOLIC ACID. [Concomitant]
     Active Substance: FOLIC ACID
     Dosage: 1 MG, UNK
  4. SILVER SULFADIAZIN [Concomitant]
     Active Substance: SILVER SULFADIAZINE
     Dosage: UNK
  5. RANITIDINE. [Concomitant]
     Active Substance: RANITIDINE
     Dosage: 150 MG, UNK
  6. ENBREL [Suspect]
     Active Substance: ETANERCEPT
     Indication: PULMONARY TUBERCULOSIS
     Dosage: 50 MG, QWK
     Route: 058
     Dates: start: 201703
  7. VALSARTAN. [Concomitant]
     Active Substance: VALSARTAN
     Dosage: UNK
  8. METHOTREXATE. [Concomitant]
     Active Substance: METHOTREXATE
     Dosage: 2.5 MG, UNK

REACTIONS (2)
  - Drug ineffective [Unknown]
  - Off label use [Unknown]

NARRATIVE: CASE EVENT DATE: 201703
